FAERS Safety Report 4355470-4 (Version None)
Quarter: 2004Q2

REPORT INFORMATION
  Report Type: 
  Country: None (occurrence: None)
  Receive Date: 20040510
  Receipt Date: 20020516
  Transmission Date: 20050107
  Serious: Yes (Hospitalization, Disabling, Other)
  Sender: FDA-Public Use
  Company Number: US-MERCK-0205USA02012

PATIENT
  Age: 46 Year
  Sex: Female

DRUGS (6)
  1. VIOXX [Suspect]
     Indication: BACK PAIN
     Route: 048
     Dates: start: 20000101, end: 20000101
  2. VIOXX [Suspect]
     Route: 048
     Dates: start: 20000921
  3. VIOXX [Suspect]
     Route: 048
     Dates: start: 20000903, end: 20000907
  4. VIOXX [Suspect]
     Indication: NECK PAIN
     Route: 048
     Dates: start: 20000101, end: 20000101
  5. VIOXX [Suspect]
     Route: 048
     Dates: start: 20000921
  6. VIOXX [Suspect]
     Route: 048
     Dates: start: 20000903, end: 20000907

REACTIONS (57)
  - ABDOMINAL ADHESIONS [None]
  - ABDOMINAL PAIN UPPER [None]
  - ACUTE CORONARY SYNDROME [None]
  - ANAEMIA [None]
  - ANGINA UNSTABLE [None]
  - ANXIETY [None]
  - ARRHYTHMIA [None]
  - BACK INJURY [None]
  - BLOOD PRESSURE INADEQUATELY CONTROLLED [None]
  - BRONCHITIS ACUTE [None]
  - CONJUNCTIVAL HAEMORRHAGE [None]
  - CONTUSION [None]
  - CORONARY ARTERIAL STENT INSERTION [None]
  - CORONARY ARTERY ATHEROSCLEROSIS [None]
  - CORONARY ARTERY DISEASE [None]
  - CORONARY ARTERY RESTENOSIS [None]
  - CORONARY ARTERY STENOSIS [None]
  - DEPRESSION [None]
  - DILATATION ATRIAL [None]
  - DUODENITIS [None]
  - DYSPEPSIA [None]
  - EXTRASYSTOLES [None]
  - FALL [None]
  - GASTRITIS [None]
  - GASTROINTESTINAL HAEMORRHAGE [None]
  - HAEMATOCHEZIA [None]
  - HEADACHE [None]
  - HYPERTENSION [None]
  - HYPOAESTHESIA [None]
  - HYPOKALAEMIA [None]
  - INJURY [None]
  - JOINT SPRAIN [None]
  - LARYNGITIS [None]
  - MELAENA [None]
  - MENOPAUSAL SYMPTOMS [None]
  - MIGRAINE [None]
  - MITRAL VALVE INCOMPETENCE [None]
  - MITRAL VALVE PROLAPSE [None]
  - MYOCARDIAL INFARCTION [None]
  - NAUSEA [None]
  - OEDEMA PERIPHERAL [None]
  - ORTHOSTATIC HYPOTENSION [None]
  - PALPITATIONS [None]
  - PELVIC PERITONEAL ADHESIONS [None]
  - PERICARDIAL EFFUSION [None]
  - PHAEOCHROMOCYTOMA [None]
  - PHLEBOTHROMBOSIS [None]
  - PHOTOPSIA [None]
  - RHINITIS ALLERGIC [None]
  - SCAN MYOCARDIAL PERFUSION ABNORMAL [None]
  - STENT OCCLUSION [None]
  - SUPRAVENTRICULAR EXTRASYSTOLES [None]
  - SYNCOPE [None]
  - TEMPERATURE INTOLERANCE [None]
  - TRICUSPID VALVE INCOMPETENCE [None]
  - VENTRICULAR EXTRASYSTOLES [None]
  - VISION BLURRED [None]
